FAERS Safety Report 9241871 (Version 1)
Quarter: 2013Q2

REPORT INFORMATION
  Report Type: Spontaneous
  Country: US (occurrence: US)
  Receive Date: 20130419
  Receipt Date: 20130419
  Transmission Date: 20140414
  Serious: No
  Sender: FDA-Public Use
  Company Number: US-SANOFI-AVENTIS-2013SA028593

PATIENT
  Age: 75 Year
  Sex: Female

DRUGS (2)
  1. ENOXAPARIN SODIUM - WINTHROP [Suspect]
     Indication: MYOCARDIAL BRIDGING
     Route: 065
     Dates: start: 201303
  2. ENOXAPARIN SODIUM - WINTHROP [Suspect]
     Indication: MYOCARDIAL BRIDGING
     Route: 065
     Dates: start: 20130313

REACTIONS (1)
  - Incorrect dose administered [Unknown]
